FAERS Safety Report 5169363-6 (Version None)
Quarter: 2006Q4

REPORT INFORMATION
  Report Type: 
  Country: None (occurrence: None)
  Receive Date: 20061211
  Receipt Date: 20061129
  Transmission Date: 20070319
  Serious: Yes (Hospitalization)
  Sender: FDA-Public Use
  Company Number: FR-BRISTOL-MYERS SQUIBB COMPANY-13602537

PATIENT
  Age: 84 Year
  Sex: Male

DRUGS (5)
  1. GLUCOPHAGE [Suspect]
     Route: 048
  2. PREVISCAN [Suspect]
     Indication: ATRIAL FLUTTER
     Route: 048
     Dates: end: 20060924
  3. PERINDOPRIL ERBUMINE [Suspect]
     Route: 048
  4. AMLOR [Suspect]
     Route: 048
  5. LASIX [Suspect]
     Route: 048

REACTIONS (1)
  - HAEMATOMA [None]
